FAERS Safety Report 14391739 (Version 8)
Quarter: 2025Q4

REPORT INFORMATION
  Report Type: Report from Study
  Country: EU (occurrence: EU)
  Receive Date: 20180116
  Receipt Date: 20251120
  Transmission Date: 20260117
  Serious: Yes (Hospitalization, Other)
  Sender: TEVA
  Company Number: EU-SHIRE-FR201730985

PATIENT
  Age: 4 Year
  Sex: Female

DRUGS (16)
  1. METHOTREXATE [Suspect]
     Active Substance: METHOTREXATE
     Indication: Acute lymphocytic leukaemia
     Dosage: DOSAGE TEXT: 1X/DAY: QD
     Route: 037
     Dates: start: 20171109, end: 20171109
  2. METHOTREXATE [Suspect]
     Active Substance: METHOTREXATE
     Indication: Acute lymphocytic leukaemia
     Dosage: DOSAGE TEXT: 1X/DAY: QD
     Route: 037
     Dates: start: 20170608
  3. ADRIAMYCIN [Suspect]
     Active Substance: DOXORUBICIN HYDROCHLORIDE
     Indication: Acute lymphocytic leukaemia
     Dosage: DOSAGE TEXT: 17.4 MG, 1X/DAY:QD, ADRIAMYCIN /00330901/
     Route: 042
     Dates: start: 20171106, end: 20171213
  4. THIOGUANINE ANHYDROUS [Suspect]
     Active Substance: THIOGUANINE ANHYDROUS
     Indication: Acute lymphocytic leukaemia
     Dosage: DOSAGE TEXT: 1X/DAY
     Route: 048
     Dates: start: 20171227, end: 20180109
  5. CYCLOPHOSPHAMIDE [Suspect]
     Active Substance: CYCLOPHOSPHAMIDE
     Indication: Acute lymphocytic leukaemia
     Dosage: DOSAGE TEXT: 650 MG, 1X/DAY:QD
     Route: 042
     Dates: start: 20171227, end: 20171227
  6. CYTARABINE [Suspect]
     Active Substance: CYTARABINE
     Indication: Acute lymphocytic leukaemia
     Dosage: DOSAGE TEXT: 1X/DAY
     Route: 042
     Dates: start: 20171229, end: 20180118
  7. DOXORUBICIN HYDROCHLORIDE [Suspect]
     Active Substance: DOXORUBICIN HYDROCHLORIDE
     Indication: Acute lymphocytic leukaemia
     Route: 042
     Dates: start: 20171106, end: 20171213
  8. DEXAMETHASONE [Suspect]
     Active Substance: DEXAMETHASONE
     Indication: Acute lymphocytic leukaemia
     Dosage: DOSAGE TEXT: 1X/DAY
     Route: 048
     Dates: start: 20171106, end: 20171120
  9. DEXAMETHASONE [Suspect]
     Active Substance: DEXAMETHASONE
     Indication: Acute lymphocytic leukaemia
     Dosage: DOSAGE TEXT: UNSPECIFIED
     Route: 048
     Dates: start: 20170615, end: 20170925
  10. DEXAMETHASONE [Suspect]
     Active Substance: DEXAMETHASONE
     Indication: Acute lymphocytic leukaemia
     Dosage: DOSAGE TEXT: UNSPECIFIED
     Route: 048
     Dates: start: 20171106, end: 20171120
  11. VINCRISTINE [Suspect]
     Active Substance: VINCRISTINE
     Indication: Acute lymphocytic leukaemia
     Dosage: DOSAGE TEXT: UNK, UNK
     Route: 042
     Dates: start: 20171106, end: 20171213
  12. VINCRISTINE [Suspect]
     Active Substance: VINCRISTINE
     Indication: Acute lymphocytic leukaemia
     Dosage: DOSAGE TEXT: UNSPECIFIED
     Route: 042
     Dates: start: 20170615
  13. PEGASPARGASE [Suspect]
     Active Substance: PEGASPARGASE
     Indication: Acute lymphocytic leukaemia
     Dosage: DOSAGE TEXT: UNK, UNK
     Route: 042
     Dates: start: 20171109, end: 20171109
  14. PEGASPARGASE [Suspect]
     Active Substance: PEGASPARGASE
     Indication: Acute lymphocytic leukaemia
     Dosage: DOSAGE TEXT: 1X/DAY
     Route: 042
     Dates: start: 20170619
  15. MERCAPTOPURINE [Suspect]
     Active Substance: MERCAPTOPURINE
     Indication: Acute lymphocytic leukaemia
     Dosage: DOSAGE TEXT: 1X/DAY
     Route: 048
     Dates: start: 20170727
  16. METHOTREXATE [Suspect]
     Active Substance: METHOTREXATE
     Indication: Acute lymphocytic leukaemia
     Dosage: 17.5 MG, 1X/DAY: QD
     Route: 048
     Dates: start: 20170803

REACTIONS (7)
  - Perineal necrosis [Recovered/Resolved]
  - Perineal infection [Recovered/Resolved]
  - Perineal infection [Recovered/Resolved]
  - Febrile bone marrow aplasia [Recovered/Resolved]
  - Product use in unapproved indication [Unknown]
  - Medication error [Recovered/Resolved]
  - Off label use [Unknown]

NARRATIVE: CASE EVENT DATE: 20171106
